FAERS Safety Report 18316317 (Version 1)
Quarter: 2020Q3

REPORT INFORMATION
  Report Type: Spontaneous
  Country: US (occurrence: US)
  Receive Date: 20200927
  Receipt Date: 20200927
  Transmission Date: 20201103
  Serious: No
  Sender: FDA-Public Use
  Company Number: US-SUN PHARMACEUTICAL INDUSTRIES LTD-2020R1-245849

PATIENT
  Sex: Female

DRUGS (2)
  1. ILUMYA [Suspect]
     Active Substance: TILDRAKIZUMAB-ASMN
     Indication: RHEUMATOID ARTHRITIS
     Dosage: 100 MILLIGRAM, AT WK 4 THEN EVERY 12WKS
     Route: 058
  2. ILUMYA [Suspect]
     Active Substance: TILDRAKIZUMAB-ASMN
     Indication: PSORIASIS

REACTIONS (1)
  - Drug ineffective [Unknown]
